FAERS Safety Report 7987639-1 (Version None)
Quarter: 2011Q4

REPORT INFORMATION
  Report Type: 
  Country: None (occurrence: None)
  Receive Date: 20111216
  Receipt Date: 20101116
  Transmission Date: 20120403
  Serious: No
  Sender: FDA-Public Use
  Company Number: US-BRISTOL-MYERS SQUIBB COMPANY-15329576

PATIENT
  Age: 64 Year
  Sex: Female
  Weight: 63 kg

DRUGS (10)
  1. LEVOTHYROXINE SODIUM [Concomitant]
  2. IMITREX [Concomitant]
     Indication: MIGRAINE
     Dosage: INJECTION
  3. ACYCLOVIR [Concomitant]
  4. CITALOPRAM [Concomitant]
  5. VITAMIN TAB [Concomitant]
  6. TRAZODONE HCL [Concomitant]
     Dosage: 1 DF:1/4 TAB AT NIGHT
  7. LAMOTRIGINE [Concomitant]
  8. PROGESTERONE [Concomitant]
  9. ABILIFY [Suspect]
     Indication: DEPRESSION
     Dates: start: 20100901
  10. ESTRADIOL + TESTOSTERONE [Concomitant]
     Dosage: BIEST ESTOIOL ESTRADIOL TESTEROTERSONE

REACTIONS (2)
  - DIARRHOEA [None]
  - ABDOMINAL DISTENSION [None]
